FAERS Safety Report 11653067 (Version 1)
Quarter: 2015Q4

REPORT INFORMATION
  Report Type: Spontaneous
  Country: US (occurrence: US)
  Receive Date: 20151022
  Receipt Date: 20151022
  Transmission Date: 20160304
  Serious: Yes (Other)
  Sender: FDA-Public Use
  Company Number: US-SHIRE-US201512773

PATIENT
  Age: 20 Year
  Sex: Male
  Weight: 82.99 kg

DRUGS (3)
  1. VYVANSE [Suspect]
     Active Substance: LISDEXAMFETAMINE DIMESYLATE
     Indication: BIPOLAR DISORDER
     Dosage: 70 MG, 1X/DAY:QD
     Route: 048
     Dates: start: 2015, end: 20151011
  2. VYVANSE [Suspect]
     Active Substance: LISDEXAMFETAMINE DIMESYLATE
     Indication: COGNITIVE DISORDER
  3. VYVANSE [Suspect]
     Active Substance: LISDEXAMFETAMINE DIMESYLATE
     Indication: PERSONALITY DISORDER

REACTIONS (2)
  - Product use issue [Recovered/Resolved]
  - Hallucination [Not Recovered/Not Resolved]

NARRATIVE: CASE EVENT DATE: 2015
